FAERS Safety Report 17293444 (Version 1)
Quarter: 2020Q1

REPORT INFORMATION
  Report Type: Spontaneous
  Country: FR (occurrence: FR)
  Receive Date: 20200121
  Receipt Date: 20200121
  Transmission Date: 20200409
  Serious: Yes (Other)
  Sender: FDA-Public Use
  Company Number: FR-TEVA-2020-FR-1170205

PATIENT
  Age: 19 Year
  Sex: Female
  Weight: 48 kg

DRUGS (1)
  1. MODIODAL 100 MG, COMPRIM? [Suspect]
     Active Substance: MODAFINIL
     Indication: NARCOLEPSY
     Dosage: 2-1-0
     Route: 048
     Dates: start: 20191021

REACTIONS (6)
  - Headache [Not Recovered/Not Resolved]
  - Aggression [Recovered/Resolved]
  - Tremor [Not Recovered/Not Resolved]
  - Nausea [Not Recovered/Not Resolved]
  - Hot flush [Not Recovered/Not Resolved]
  - Abdominal pain [Not Recovered/Not Resolved]

NARRATIVE: CASE EVENT DATE: 201910
